FAERS Safety Report 8572713 (Version 4)
Quarter: 2013Q1

REPORT INFORMATION
  Report Type: Report from Study
  Country: JP (occurrence: JP)
  Receive Date: 20120522
  Receipt Date: 20130205
  Transmission Date: 20140127
  Serious: Yes (Other)
  Sender: FDA-Public Use
  Company Number: JP-VERTEX PHARMACEUTICALS INC.-AE-2012-007250

PATIENT
  Age: 59 Year
  Sex: Male

DRUGS (7)
  1. VX-950 (TELAPREVIR) [Suspect]
     Indication: CHRONIC HEPATITIS C
     Dosage: 1500 MG, QD
     Route: 048
     Dates: start: 20120411, end: 20120509
  2. PEGINTRON [Suspect]
     Indication: CHRONIC HEPATITIS C
     Dosage: 1.15 ?G/KG, QW
     Route: 058
     Dates: start: 20120411, end: 20120509
  3. REBETOL [Suspect]
     Indication: CHRONIC HEPATITIS C
     Dosage: 400 MG, QD
     Route: 048
     Dates: start: 20120411, end: 20120509
  4. URSO [Concomitant]
     Dosage: 900 MG, QD
     Route: 048
     Dates: end: 20120425
  5. LOXOPROFEN [Concomitant]
     Dosage: 60 MG, PRN
     Route: 048
     Dates: start: 20120411
  6. PEGASYS [Concomitant]
     Dosage: 90 ?G, UNK
     Route: 058
     Dates: start: 20120718
  7. COPEGUS [Concomitant]
     Dosage: 800 MG, QD
     Route: 048
     Dates: start: 20120718

REACTIONS (1)
  - Rash [Recovered/Resolved]
